FAERS Safety Report 4961771-9 (Version None)
Quarter: 2006Q2

REPORT INFORMATION
  Report Type: 
  Country: None (occurrence: None)
  Receive Date: 20060404
  Receipt Date: 20050801
  Transmission Date: 20061013
  Serious: Yes (Disabling)
  Sender: FDA-Public Use
  Company Number: PHHO2005JP12302

PATIENT
  Age: 78 Year
  Sex: Female

DRUGS (11)
  1. LOXONIN [Concomitant]
     Indication: PROPHYLAXIS
     Dosage: UNK, UNK
     Dates: start: 20040109, end: 20040229
  2. SELBEX [Concomitant]
     Indication: PROPHYLAXIS
     Dates: start: 20040109
  3. CRAVIT [Concomitant]
     Indication: PROPHYLAXIS
     Dates: start: 20040109, end: 20040229
  4. LASIX [Concomitant]
     Indication: PROPHYLAXIS
     Dates: start: 20051107, end: 20051107
  5. BIOFERMIN [Concomitant]
     Indication: PROPHYLAXIS
     Dates: start: 20051107, end: 20060220
  6. GLEEVEC [Suspect]
     Indication: CHRONIC MYELOID LEUKAEMIA
     Dosage: 400 MG, QD
     Route: 048
     Dates: start: 20040109, end: 20040206
  7. GLEEVEC [Suspect]
     Dosage: 400 MG, QD
     Route: 048
     Dates: start: 20040216, end: 20041220
  8. GLEEVEC [Suspect]
     Dosage: 300 MG, QD
     Route: 048
     Dates: start: 20041221, end: 20050220
  9. GLEEVEC [Suspect]
     Dosage: 400 MG, QD
     Route: 048
     Dates: start: 20050221, end: 20050327
  10. GLEEVEC [Suspect]
     Dosage: 300 MG, QD
     Route: 048
     Dates: start: 20050328, end: 20050522
  11. GLEEVEC [Suspect]
     Dosage: 200 MG, QD
     Route: 048
     Dates: start: 20051107, end: 20060220

REACTIONS (4)
  - ANAEMIA [None]
  - BLINDNESS [None]
  - RETINAL ARTERY OCCLUSION [None]
  - VISUAL DISTURBANCE [None]
